FAERS Safety Report 5183860-9 (Version None)
Quarter: 2006Q4

REPORT INFORMATION
  Report Type: 
  Country: None (occurrence: None)
  Receive Date: 20061220
  Receipt Date: 20060111
  Transmission Date: 20070319
  Serious: Yes (Other)
  Sender: FDA-Public Use
  Company Number: PHNU2006DE00520

PATIENT
  Age: 74 Year
  Sex: Female
  Weight: 54 kg

DRUGS (2)
  1. MYOCET [Concomitant]
     Indication: BREAST CANCER
     Dosage: 50 MG, QD
     Route: 048
     Dates: start: 20040330
  2. ZOMETA [Suspect]
     Indication: BREAST CANCER RECURRENT
     Dosage: 4 MG, QMO
     Route: 042
     Dates: start: 20040330

REACTIONS (6)
  - BIOPSY SITE UNSPECIFIED ABNORMAL [None]
  - BONE DISORDER [None]
  - DENTAL OPERATION [None]
  - OSTEONECROSIS [None]
  - OSTEOTOMY [None]
  - TOOTH EXTRACTION [None]
